FAERS Safety Report 23568021 (Version 2)
Quarter: 2024Q2

REPORT INFORMATION
  Report Type: Spontaneous
  Country: US (occurrence: US)
  Receive Date: 20240226
  Receipt Date: 20240429
  Transmission Date: 20240715
  Serious: No
  Sender: FDA-Public Use
  Company Number: US-SA-SAC20240222000303

PATIENT
  Age: 27 Year
  Sex: Female

DRUGS (2)
  1. DUPIXENT [Suspect]
     Active Substance: DUPILUMAB
     Indication: Neurodermatitis
     Dosage: 300 MG, QOW
     Route: 058
  2. CLOBETASOL [Concomitant]
     Active Substance: CLOBETASOL
     Indication: Pruritus
     Dosage: UNK

REACTIONS (2)
  - Pruritus [Unknown]
  - Product storage error [Unknown]
